FAERS Safety Report 5501632-X (Version None)
Quarter: 2007Q4

REPORT INFORMATION
  Report Type: 
  Country: None (occurrence: None)
  Receive Date: 20071030
  Receipt Date: 20071019
  Transmission Date: 20080405
  Serious: Yes (Life-Threatening, Hospitalization, Other)
  Sender: FDA-Public Use
  Company Number: US-ELI_LILLY_AND_COMPANY-US200710000244

PATIENT
  Age: 22 Year
  Sex: Male

DRUGS (2)
  1. FORTEO [Suspect]
     Indication: OSTEOPOROSIS
     Dosage: UNK, UNK
     Dates: start: 20070501
  2. CORTICOSTEROID NOS [Concomitant]
     Indication: RESTRICTIVE PULMONARY DISEASE

REACTIONS (1)
  - CARDIAC ARREST [None]
